FAERS Safety Report 25654054 (Version 1)
Quarter: 2025Q3

REPORT INFORMATION
  Report Type: Spontaneous
  Country: IL (occurrence: IL)
  Receive Date: 20250807
  Receipt Date: 20250807
  Transmission Date: 20251021
  Serious: Yes (Other)
  Sender: REGENERON
  Company Number: IL-ULTRAGENYX PHARMACEUTICAL INC.-IL-UGX-25-01473

PATIENT
  Age: 53 Year
  Sex: Female

DRUGS (1)
  1. EVKEEZA [Suspect]
     Active Substance: EVINACUMAB-DGNB
     Indication: Product used for unknown indication

REACTIONS (1)
  - Herpes zoster [Unknown]
